FAERS Safety Report 4655194-X (Version None)
Quarter: 2005Q2

REPORT INFORMATION
  Report Type: 
  Country: None (occurrence: None)
  Receive Date: 20050506
  Receipt Date: 20050504
  Transmission Date: 20051028
  Serious: Yes (Hospitalization)
  Sender: FDA-Public Use
  Company Number: US-GLAXOSMITHKLINE-A0557291A

PATIENT
  Sex: Male

DRUGS (4)
  1. FLOVENT [Suspect]
     Indication: PULMONARY FIBROSIS
     Dosage: 2PUFF TWICE PER DAY
     Route: 055
  2. ALBUTEROL [Concomitant]
  3. IPRATROPIUM BROMIDE [Concomitant]
  4. ENSURE [Concomitant]

REACTIONS (2)
  - BACTERIAL INFECTION [None]
  - PRODUCTIVE COUGH [None]
